FAERS Safety Report 6151681-6 (Version None)
Quarter: 2009Q2

REPORT INFORMATION
  Report Type: 
  Country: None (occurrence: None)
  Receive Date: 20090410
  Receipt Date: 20090331
  Transmission Date: 20091009
  Serious: Yes (Other)
  Sender: FDA-Public Use
  Company Number: US-JNJFOC-20090400371

PATIENT
  Sex: Female
  Weight: 58.97 kg

DRUGS (4)
  1. TOPAMAX [Suspect]
     Indication: POST-TRAUMATIC STRESS DISORDER
     Route: 048
  2. TOPAMAX [Suspect]
     Indication: MOOD SWINGS
     Dosage: 100MG PM/AM (TOTAL DOSE 200MG)
     Route: 048
  3. KLONOPIN [Concomitant]
     Indication: ANXIETY
     Route: 065
  4. XANAX [Concomitant]
     Indication: ANXIETY
     Route: 065

REACTIONS (2)
  - PEPTIC ULCER [None]
  - THERAPEUTIC RESPONSE UNEXPECTED [None]
